FAERS Safety Report 15224803 (Version 6)
Quarter: 2018Q3

REPORT INFORMATION
  Report Type: Spontaneous
  Country: FR (occurrence: FR)
  Receive Date: 20180731
  Receipt Date: 20180806
  Transmission Date: 20181010
  Serious: Yes (Hospitalization, Other)
  Sender: FDA-Public Use
  Company Number: PHHY2018FR055456

PATIENT
  Age: 38 Year
  Sex: Female

DRUGS (5)
  1. METHYLPREDNISOLONE. [Suspect]
     Active Substance: METHYLPREDNISOLONE
     Indication: CRYOGLOBULINAEMIA
     Dosage: 3 DF, UNK
     Route: 065
  2. CHLORHEXIDINE [Suspect]
     Active Substance: CHLORHEXIDINE
     Indication: INFECTION PROPHYLAXIS
  3. CHLORHEXIDINE [Suspect]
     Active Substance: CHLORHEXIDINE
     Indication: CRYOGLOBULINAEMIA
     Dosage: UNK, 3 TIMES A DAY
     Route: 065
  4. PREDNISOLONE. [Suspect]
     Active Substance: PREDNISOLONE
     Indication: CRYOGLOBULINAEMIA
     Dosage: 0.5 MG/KG, UNK
     Route: 065
  5. RITUXIMAB. [Suspect]
     Active Substance: RITUXIMAB
     Indication: CRYOGLOBULINAEMIA
     Dosage: 375 G/M2, QW
     Route: 065

REACTIONS (15)
  - Staphylococcal sepsis [Unknown]
  - Streptococcus test positive [Unknown]
  - Off label use [Unknown]
  - Parvimonas test positive [Unknown]
  - Acute kidney injury [Unknown]
  - Endocarditis [Unknown]
  - Generalised oedema [Unknown]
  - Pyrexia [Unknown]
  - Left ventricular dysfunction [Unknown]
  - Bacteraemia [Recovered/Resolved]
  - Dyspnoea [Unknown]
  - Product use in unapproved indication [Unknown]
  - Bacterial disease carrier [Unknown]
  - Renal vasculitis [Unknown]
  - Veillonella test positive [Unknown]
